FAERS Safety Report 9471117 (Version 4)
Quarter: 2013Q3

REPORT INFORMATION
  Report Type: Spontaneous
  Country: US (occurrence: US)
  Receive Date: 20130822
  Receipt Date: 20130917
  Transmission Date: 20140515
  Serious: Yes (Other)
  Sender: FDA-Public Use
  Company Number: US-ASTRAZENECA-2013SE63717

PATIENT
  Age: 24081 Day
  Sex: Female
  Weight: 64 kg

DRUGS (4)
  1. NEXIUM [Suspect]
     Indication: ULCER
     Route: 048
     Dates: start: 2007, end: 201203
  2. NEXIUM [Suspect]
     Indication: ULCER
     Route: 048
     Dates: start: 20120319
  3. NEXIUM [Suspect]
     Indication: ULCER
     Route: 048
     Dates: end: 201307
  4. NEXIUM [Suspect]
     Indication: ULCER
     Route: 048
     Dates: start: 201307

REACTIONS (10)
  - Ulcer [Unknown]
  - Injury [Unknown]
  - Gastric ulcer [Unknown]
  - Weight decreased [Unknown]
  - Dysphagia [Unknown]
  - Fear [Unknown]
  - Fatigue [Unknown]
  - Abdominal discomfort [Unknown]
  - Confusional state [Unknown]
  - Intentional drug misuse [Unknown]
